FAERS Safety Report 4704555-9 (Version None)
Quarter: 2005Q2

REPORT INFORMATION
  Report Type: 
  Country: None (occurrence: None)
  Receive Date: 20050630
  Receipt Date: 20050616
  Transmission Date: 20051028
  Serious: Yes (Hospitalization)
  Sender: FDA-Public Use
  Company Number: HQWYE306307JUN05

PATIENT
  Age: 76 Year
  Sex: Male
  Weight: 81.5 kg

DRUGS (32)
  1. RAPAMUNE [Suspect]
     Indication: PROPHYLAXIS AGAINST TRANSPLANT REJECTION
     Dosage: 9 MG 1X PER 1 DAY, ORAL
     Route: 048
     Dates: start: 20050131
  2. RAPAMUNE [Suspect]
  3. ZENAPAX [Concomitant]
  4. PREDNISONE [Concomitant]
  5. PROGRAF [Concomitant]
  6. PROGRAF [Concomitant]
  7. COUMADIN [Concomitant]
  8. COUMADIN [Concomitant]
  9. LOVENOX [Concomitant]
  10. LOVENOX [Concomitant]
  11. DIGOXIN [Concomitant]
  12. DIGOXIN [Concomitant]
  13. CIPRO [Concomitant]
  14. CIPRO [Concomitant]
  15. FLOMAX [Concomitant]
  16. FLOVENT [Concomitant]
  17. COMBIVENT [Concomitant]
  18. ALBUTEROL [Concomitant]
  19. PROCRIT [Concomitant]
  20. ATENOLOL [Concomitant]
  21. NORVASC [Concomitant]
  22. PANCREASE (PANCRELIPASE) [Concomitant]
  23. SODIUM BICARBONATE IN PLASTIC CONTAINER [Concomitant]
  24. DOXAZOSIN (DOXAZOSIN) [Concomitant]
  25. PROTONIX [Concomitant]
  26. BACTRIM [Concomitant]
  27. FLOMAX [Concomitant]
  28. CALCIUM CARBONATE (CALCIUM CARBONATE) [Concomitant]
  29. PRAVACHOL [Concomitant]
  30. LANTUS [Concomitant]
  31. NOVOLOG [Concomitant]
  32. MULTIVITAMINS, PLAIN (MULTIVITAMINS, PLAIN) [Concomitant]

REACTIONS (5)
  - BLEEDING TIME PROLONGED [None]
  - BLOOD CREATININE INCREASED [None]
  - BLOOD GLUCOSE INCREASED [None]
  - DRUG INEFFECTIVE [None]
  - KIDNEY TRANSPLANT REJECTION [None]
